FAERS Safety Report 22959445 (Version 12)
Quarter: 2024Q2

REPORT INFORMATION
  Report Type: Report from Study
  Country: US (occurrence: US)
  Receive Date: 20230920
  Receipt Date: 20240625
  Transmission Date: 20240716
  Serious: Yes (Hospitalization, Other)
  Sender: FDA-Public Use
  Company Number: US-JAZZ PHARMACEUTICALS-2023-US-018254

PATIENT
  Age: 53 Year
  Sex: Female

DRUGS (18)
  1. XYWAV [Suspect]
     Active Substance: CALCIUM OXYBATE\MAGNESIUM OXYBATE\POTASSIUM OXYBATE\SODIUM OXYBATE
     Indication: Hypersomnia
     Dosage: 3 GRAM, BID
  2. XYWAV [Suspect]
     Active Substance: CALCIUM OXYBATE\MAGNESIUM OXYBATE\POTASSIUM OXYBATE\SODIUM OXYBATE
     Dosage: 2.25 GRAM, BID
     Route: 048
  3. XYWAV [Suspect]
     Active Substance: CALCIUM OXYBATE\MAGNESIUM OXYBATE\POTASSIUM OXYBATE\SODIUM OXYBATE
     Dosage: 3 GRAM, BID
  4. XYWAV [Suspect]
     Active Substance: CALCIUM OXYBATE\MAGNESIUM OXYBATE\POTASSIUM OXYBATE\SODIUM OXYBATE
     Dosage: 4.25 GRAM,BID
     Route: 048
  5. XYWAV [Suspect]
     Active Substance: CALCIUM OXYBATE\MAGNESIUM OXYBATE\POTASSIUM OXYBATE\SODIUM OXYBATE
     Dosage: 4.5 GRAM, BID
  6. HYDROCODONE BITARTRATE AND ACETAMINOPHEN [Suspect]
     Active Substance: ACETAMINOPHEN\HYDROCODONE BITARTRATE
     Indication: Tooth extraction
     Dosage: UNK
  7. HYDROCODONE BITARTRATE AND ACETAMINOPHEN [Suspect]
     Active Substance: ACETAMINOPHEN\HYDROCODONE BITARTRATE
     Indication: Limb operation
  8. HYDROCHLOROTHIAZIDE\TRIAMTERENE [Concomitant]
     Active Substance: HYDROCHLOROTHIAZIDE\TRIAMTERENE
     Indication: Product used for unknown indication
     Dosage: UNK
     Dates: start: 20231008
  9. VYVANSE [Concomitant]
     Active Substance: LISDEXAMFETAMINE DIMESYLATE
     Indication: Product used for unknown indication
  10. AUVELITY [Concomitant]
     Active Substance: BUPROPION HYDROCHLORIDE\DEXTROMETHORPHAN HYDROBROMIDE
     Indication: Product used for unknown indication
  11. IBUPROFEN [Concomitant]
     Active Substance: IBUPROFEN
     Indication: Product used for unknown indication
  12. AMLODIPINE [Concomitant]
     Active Substance: AMLODIPINE BESYLATE
     Indication: Product used for unknown indication
  13. MULTI MINERAL [Concomitant]
     Indication: Product used for unknown indication
  14. CELEBREX [Concomitant]
     Active Substance: CELECOXIB
     Indication: Product used for unknown indication
     Dosage: UNK
     Dates: start: 20231215
  15. GUANFACINE [Concomitant]
     Active Substance: GUANFACINE
     Indication: Product used for unknown indication
     Dosage: UNK
     Dates: start: 20231109
  16. VRAYLAR [Concomitant]
     Active Substance: CARIPRAZINE
     Indication: Antiinflammatory therapy
     Dosage: UNK
     Dates: start: 20240301
  17. ABILIFY [Concomitant]
     Active Substance: ARIPIPRAZOLE
     Indication: Antiinflammatory therapy
     Dosage: UNK
  18. GALANTAMINE [Concomitant]
     Active Substance: GALANTAMINE
     Indication: Post-acute COVID-19 syndrome

REACTIONS (34)
  - Proctitis [Unknown]
  - Dementia [Not Recovered/Not Resolved]
  - Foot operation [Unknown]
  - Limb operation [Unknown]
  - Cognitive disorder [Not Recovered/Not Resolved]
  - Anxiety [Recovered/Resolved]
  - Disturbance in attention [Unknown]
  - Amnesia [Unknown]
  - Restless legs syndrome [Not Recovered/Not Resolved]
  - Chronic fatigue syndrome [Not Recovered/Not Resolved]
  - Fibromyalgia [Not Recovered/Not Resolved]
  - Vitamin B complex deficiency [Not Recovered/Not Resolved]
  - Brain fog [Not Recovered/Not Resolved]
  - Attention deficit hyperactivity disorder [Not Recovered/Not Resolved]
  - Depression [Recovered/Resolved]
  - Tooth extraction [Unknown]
  - Weight decreased [Unknown]
  - Headache [Unknown]
  - Autonomic nervous system imbalance [Unknown]
  - Diarrhoea [Unknown]
  - Dizziness [Unknown]
  - Tendon rupture [Unknown]
  - Vertigo [Unknown]
  - Vomiting [Not Recovered/Not Resolved]
  - Migraine [Unknown]
  - Orthostatic hypotension [Unknown]
  - Myalgia [Unknown]
  - Nausea [Unknown]
  - Night sweats [Unknown]
  - Pain in extremity [Unknown]
  - Product administration interrupted [Unknown]
  - Product dose omission issue [Unknown]
  - Intentional product use issue [Unknown]
  - Intentional product use issue [Unknown]

NARRATIVE: CASE EVENT DATE: 20230910
